FAERS Safety Report 7500304-X (Version None)
Quarter: 2011Q2

REPORT INFORMATION
  Report Type: 
  Country: None (occurrence: None)
  Receive Date: 20110517
  Receipt Date: 20110504
  Transmission Date: 20111010
  Serious: Yes (Hospitalization, Disabling, Congenital Anomaly)
  Sender: FDA-Public Use
  Company Number: 1000020668

PATIENT
  Sex: Female
  Weight: 2.19 kg

DRUGS (2)
  1. ESCITALOPRAM [Suspect]
     Dosage: 10 MG (10 MG, 1 IN 1)
  2. CORTISONE (CORTISONE) (CORTISONE) [Concomitant]

REACTIONS (5)
  - ATRIAL SEPTAL DEFECT [None]
  - MATERNAL DRUGS AFFECTING FOETUS [None]
  - CONGENITAL PULMONARY VALVE DISORDER [None]
  - RENAL APLASIA [None]
  - CAESAREAN SECTION [None]
